FAERS Safety Report 11590842 (Version 1)
Quarter: 2015Q4

REPORT INFORMATION
  Report Type: Other
  Country: GB (occurrence: TR)
  Receive Date: 20151002
  Receipt Date: 20151002
  Transmission Date: 20160304
  Serious: Yes (Hospitalization, Other)
  Sender: FDA-Public Use
  Company Number: TR-CLARIS PHARMASERVICES-1042531

PATIENT
  Age: 70 Year
  Sex: Male

DRUGS (1)
  1. MIDAZOLAM HYDROCHLORIDE. [Suspect]
     Active Substance: MIDAZOLAM HYDROCHLORIDE
     Indication: ANAESTHETIC PREMEDICATION
     Route: 042

REACTIONS (2)
  - Urticaria [Recovered/Resolved]
  - Kounis syndrome [Recovered/Resolved]
